FAERS Safety Report 8760870 (Version 4)
Quarter: 2012Q4

REPORT INFORMATION
  Report Type: 
  Country: US (occurrence: US)
  Receive Date: 20120830
  Receipt Date: 20121107
  Transmission Date: 20130627
  Serious: Yes (Death, Hospitalization)
  Sender: FDA-Public Use
  Company Number: US-009507513-1208USA007857

PATIENT
  Age: 65 None
  Sex: Female

DRUGS (18)
  1. PEG-INTRON [Suspect]
     Indication: HEPATITIS C
     Dosage: 80 Microgram, qw
     Route: 058
     Dates: start: 20120215, end: 20120712
  2. REBETOL [Suspect]
     Indication: HEPATITIS C
     Dosage: 2 DF, bid
     Dates: start: 20120420, end: 20120712
  3. TELAPREVIR [Suspect]
     Indication: HEPATITIS C
     Dosage: UNK
  4. NORVASC [Concomitant]
     Dosage: UNK mg, qd
     Route: 048
  5. AZITHROMYCIN [Concomitant]
     Dosage: UNK mg, qd
     Route: 042
  6. ROCEPHIN [Concomitant]
     Dosage: UNK g, qd
     Route: 042
  7. PEPCID [Concomitant]
     Dosage: UNK mg, qd
     Route: 048
  8. DIFLUCAN [Concomitant]
     Dosage: UNK mg, qd
     Route: 048
  9. HYDROCHLOROTHIAZIDE [Concomitant]
     Dosage: UNK mg, UNK
     Route: 048
  10. DUONEB [Concomitant]
     Dosage: UNK, q6h
  11. SOLU-MEDROL [Concomitant]
     Dosage: UNK, q6h
     Route: 042
     Dates: start: 20120719
  12. SENOKOT (SENNA) [Concomitant]
     Dosage: 2 DF, hs
     Route: 048
  13. BACTRIM [Concomitant]
     Dosage: 2 DF, q8h
     Route: 048
  14. ALBUTEROL [Concomitant]
     Dosage: UNK, prn
  15. ROBITUSSIN [Concomitant]
     Dosage: UNK, prn
  16. ATIVAN [Concomitant]
     Dosage: UNK, prn
  17. ZOFRAN [Concomitant]
     Dosage: UNK, prn
  18. PERCOCET [Concomitant]
     Dosage: UNK, prn

REACTIONS (19)
  - Respiratory failure [Fatal]
  - Hepatic failure [Fatal]
  - Disease recurrence [Unknown]
  - Dehydration [Unknown]
  - Interstitial lung disease [Recovering/Resolving]
  - Respiratory distress [Recovering/Resolving]
  - Dyspnoea [Recovering/Resolving]
  - Fungal infection [Unknown]
  - Pneumonia [Unknown]
  - Pneumonitis [Unknown]
  - Anaemia [Unknown]
  - Pneumonitis [Unknown]
  - Hepatitis C [Fatal]
  - Interstitial lung disease [Fatal]
  - Weight decreased [Unknown]
  - Fatigue [Unknown]
  - Dizziness [Unknown]
  - Dysphagia [Unknown]
  - Thrombocytopenia [Unknown]
